FAERS Safety Report 17354210 (Version 1)
Quarter: 2020Q1

REPORT INFORMATION
  Report Type: Spontaneous
  Country: US (occurrence: US)
  Receive Date: 20200116
  Receipt Date: 20200116
  Transmission Date: 20200409
  Serious: No
  Sender: FDA-Public Use
  Company Number: None

PATIENT
  Age: 77 Year
  Sex: Male
  Weight: 101 kg

DRUGS (1)
  1. APIXABAN (APIXABAN 5MG TAB) [Suspect]
     Active Substance: APIXABAN
     Route: 048
     Dates: start: 20190713, end: 20191004

REACTIONS (4)
  - Rash [None]
  - Blister [None]
  - Wound haemorrhage [None]
  - Urticaria [None]

NARRATIVE: CASE EVENT DATE: 20191004
